FAERS Safety Report 7877093-2 (Version None)
Quarter: 2011Q4

REPORT INFORMATION
  Report Type: 
  Country: None (occurrence: None)
  Receive Date: 20111031
  Receipt Date: 20111019
  Transmission Date: 20120403
  Serious: No
  Sender: FDA-Public Use
  Company Number: US-ABBOTT-11P-163-0867186-00

PATIENT
  Age: 72 Year
  Sex: Female
  Weight: 51.302 kg

DRUGS (3)
  1. CREON [Suspect]
     Indication: PANCREATIC DISORDER
     Dates: start: 20100901
  2. LEVOTHYROXINE SODIUM [Concomitant]
     Indication: THYROID DISORDER
  3. ALENDRONATE SODIUM [Concomitant]
     Indication: BONE DISORDER

REACTIONS (2)
  - BLOOD GLUCOSE INCREASED [None]
  - BLOOD PRESSURE INCREASED [None]
